FAERS Safety Report 19387238 (Version 2)
Quarter: 2021Q3

REPORT INFORMATION
  Report Type: Spontaneous
  Country: US (occurrence: US)
  Receive Date: 20210608
  Receipt Date: 20210805
  Transmission Date: 20211014
  Serious: No
  Sender: FDA-Public Use
  Company Number: US-SA-2021SA189370

PATIENT
  Age: 36 Year
  Sex: Female

DRUGS (3)
  1. FABRAZYME [Suspect]
     Active Substance: AGALSIDASE BETA
     Indication: FABRY^S DISEASE
     Dosage: 80 MG, QOW
     Route: 041
     Dates: start: 20200409
  2. FABRAZYME [Suspect]
     Active Substance: AGALSIDASE BETA
     Dosage: SDV 5 MG DOSE? 10MG EVERY 2 WEEKS
     Route: 041
  3. FABRAZYME [Suspect]
     Active Substance: AGALSIDASE BETA
     Dosage: 35 MG DOSE? 70MG EVERY 2 WEEKS
     Route: 041

REACTIONS (1)
  - Pruritus [Unknown]
